FAERS Safety Report 7930959-7 (Version None)
Quarter: 2011Q4

REPORT INFORMATION
  Report Type: 
  Country: None (occurrence: None)
  Receive Date: 20111121
  Receipt Date: 20111107
  Transmission Date: 20120403
  Serious: Yes (Other)
  Sender: FDA-Public Use
  Company Number: US-PFIZER INC-2011284021

PATIENT
  Sex: Female

DRUGS (2)
  1. MORPHINE SULFATE [Suspect]
     Indication: PAIN
     Dosage: 30 MG, 4X/DAY
     Route: 048
     Dates: start: 20101001
  2. MORPHINE SULFATE [Suspect]
     Indication: PAIN
     Dosage: 100 MG, 5XDAY
     Route: 048
     Dates: start: 20090101

REACTIONS (1)
  - SUBSTANCE ABUSE [None]
